FAERS Safety Report 10696900 (Version 1)
Quarter: 2015Q1

REPORT INFORMATION
  Report Type: Spontaneous
  Country: US (occurrence: US)
  Receive Date: 20150108
  Receipt Date: 20150108
  Transmission Date: 20150721
  Serious: Yes (Other)
  Sender: FDA-Public Use
  Company Number: US-CIPLA LTD.-2014US03024

PATIENT
  Age: 56 Year
  Sex: Male

DRUGS (7)
  1. CARBOPLATIN. [Suspect]
     Active Substance: CARBOPLATIN
     Indication: SQUAMOUS CELL CARCINOMA
     Dosage: (AUC) OF 2 MG/ML/MIN ON DAYS 1, 8, AND 15 OF CYCLE 1
  2. RADIATION THERAPY [Suspect]
     Active Substance: RADIATION THERAPY
     Indication: SQUAMOUS CELL CARCINOMA
  3. CETUXIMAB [Suspect]
     Active Substance: CETUXIMAB
     Indication: SQUAMOUS CELL CARCINOMA
     Dosage: 400 MG/M2 ,DAY 1 FOLLOWED BY WEEKLY ADMINISTRATION AT 250 MG/M2 ON DAYS 8,15,22 CYCLE 1
  4. CISPLATIN. [Suspect]
     Active Substance: CISPLATIN
     Indication: SQUAMOUS CELL CARCINOMA
  5. DIPHENHYDRAMINE [Concomitant]
     Active Substance: DIPHENHYDRAMINE
     Dosage: 50 MG
     Route: 042
  6. EVEROLIMUS [Suspect]
     Active Substance: EVEROLIMUS
     Indication: SQUAMOUS CELL CARCINOMA
     Dosage: 2.5 MG EVERY OTHER DAY
  7. DEXAMETHASONE. [Concomitant]
     Active Substance: DEXAMETHASONE
     Dosage: 20 MG
     Route: 042

REACTIONS (2)
  - Disease progression [Unknown]
  - Visual impairment [Unknown]
